FAERS Safety Report 16170897 (Version 1)
Quarter: 2019Q2

REPORT INFORMATION
  Report Type: Spontaneous
  Country: RU (occurrence: RU)
  Receive Date: 20190408
  Receipt Date: 20190408
  Transmission Date: 20190711
  Serious: Yes (Other)
  Sender: FDA-Public Use
  Company Number: RU-PROVELL PHARMACEUTICALS-2065482

PATIENT
  Age: 39 Year
  Sex: Female

DRUGS (2)
  1. EUTHYROX [Suspect]
     Active Substance: LEVOTHYROXINE SODIUM
     Indication: AUTOIMMUNE THYROIDITIS
     Dates: start: 2014
  2. EUTHYROX [Suspect]
     Active Substance: LEVOTHYROXINE SODIUM
     Dates: end: 201902

REACTIONS (10)
  - Arrhythmia [Recovering/Resolving]
  - Varicose vein [Recovering/Resolving]
  - Psychomotor hyperactivity [Recovering/Resolving]
  - Overdose [Unknown]
  - Pericardial effusion [Recovering/Resolving]
  - Neurosis [Unknown]
  - Blood pressure diastolic increased [Recovering/Resolving]
  - Insomnia [Recovering/Resolving]
  - Blood thyroid stimulating hormone increased [Unknown]
  - Headache [Recovering/Resolving]

NARRATIVE: CASE EVENT DATE: 201903
